FAERS Safety Report 4359971-4 (Version None)
Quarter: 2004Q2

REPORT INFORMATION
  Report Type: 
  Country: None (occurrence: None)
  Receive Date: 20040513
  Receipt Date: 20040430
  Transmission Date: 20050107
  Serious: Yes (Other)
  Sender: FDA-Public Use
  Company Number: HQWYE713405MAY04

PATIENT
  Sex: Male

DRUGS (11)
  1. RAPAMUNE [Suspect]
     Indication: PROPHYLAXIS AGAINST TRANSPLANT REJECTION
     Dates: start: 20030115, end: 20030530
  2. INDERAL [Concomitant]
  3. BACTRIM [Concomitant]
  4. ASPIRIN [Concomitant]
  5. PREVACID [Concomitant]
  6. LASIX [Concomitant]
  7. PRIMIDONE [Concomitant]
  8. ALDACTONE [Concomitant]
  9. FLOVENT [Concomitant]
  10. ATROVENT [Concomitant]
  11. NEURONTIN [Concomitant]

REACTIONS (1)
  - LARYNGEAL CANCER [None]
